FAERS Safety Report 4619554-5 (Version None)
Quarter: 2005Q1

REPORT INFORMATION
  Report Type: 
  Country: None (occurrence: None)
  Receive Date: 20050324
  Receipt Date: 20050316
  Transmission Date: 20050727
  Serious: Yes (Hospitalization)
  Sender: FDA-Public Use
  Company Number: 2005-00954

PATIENT
  Age: 56 Year
  Sex: Male

DRUGS (3)
  1. METOPROLOL (WATSON LABORATORIES)(EMTOPROLOL TARTRATE) TABLET [Suspect]
     Indication: HYPERTENSION
     Dosage: 75 MG, DAILY, ORAL
     Route: 048
  2. BUPROPIOIN (BUPROPION) [Suspect]
     Indication: SMOKING CESSATION THERAPY
     Dosage: 150 MG, BID, ORAL
     Route: 048
  3. DILTIAZEM [Concomitant]

REACTIONS (2)
  - DRUG INTERACTION POTENTIATION [None]
  - SINUS BRADYCARDIA [None]
